FAERS Safety Report 7469084-0 (Version None)
Quarter: 2011Q2

REPORT INFORMATION
  Report Type: 
  Country: None (occurrence: None)
  Receive Date: 20110510
  Receipt Date: 20110421
  Transmission Date: 20111010
  Serious: No
  Sender: FDA-Public Use
  Company Number: US-B.I. PHARMACEUTICALS,INC./RIDGEFIELD-2011-BP-03382BP

PATIENT
  Age: 82 Year
  Sex: Female

DRUGS (10)
  1. OXYCODONE [Concomitant]
     Indication: PAIN
     Route: 048
  2. MICARDIS [Concomitant]
     Route: 048
  3. SYNTHROID [Concomitant]
     Indication: HYPOTHYROIDISM
     Route: 048
  4. CENTRUM SILVER [Concomitant]
     Indication: ROUTINE HEALTH MAINTENANCE
     Route: 048
  5. PAXIL [Concomitant]
     Route: 048
  6. PREMARIN [Concomitant]
     Indication: HOT FLUSH
     Route: 048
  7. ZANTAC 75 [Suspect]
     Indication: DYSPEPSIA
     Dosage: 150 MG
     Route: 048
     Dates: start: 20100101
  8. ZANTAC 75 [Suspect]
  9. ZOCOR [Concomitant]
     Indication: BLOOD CHOLESTEROL INCREASED
     Route: 048
  10. PLAVIX [Concomitant]
     Route: 048

REACTIONS (1)
  - DRUG INEFFECTIVE [None]
